FAERS Safety Report 4747694-9 (Version None)
Quarter: 2005Q3

REPORT INFORMATION
  Report Type: 
  Country: None (occurrence: None)
  Receive Date: 20050818
  Receipt Date: 20050620
  Transmission Date: 20060218
  Serious: Yes (Disabling)
  Sender: FDA-Public Use
  Company Number: US-BOEHRINGER INGELHEIM PHARMACEUTICALS, INC.-2005-BP-10606BP

PATIENT
  Sex: Male
  Weight: 90 kg

DRUGS (14)
  1. AGGRENOX [Suspect]
     Indication: CEREBROVASCULAR ACCIDENT PROPHYLAXIS
     Route: 048
     Dates: start: 20000901
  2. AGGRENOX [Suspect]
     Indication: TRANSIENT ISCHAEMIC ATTACK
  3. HYTRIN [Concomitant]
  4. MIDODRINE HCL [Concomitant]
  5. SANCTURA [Concomitant]
     Dosage: 20 MG BID
  6. SYNTHROID [Concomitant]
  7. MULTIPLE VITAMIN [Concomitant]
     Dosage: ONE-A-DAY
  8. GLUCOSAMINE/CHONDROITIN [Concomitant]
  9. PROAMATINE [Concomitant]
  10. METAMUCIL [Concomitant]
     Dosage: 2
  11. MUCINEX [Concomitant]
  12. ASPIRIN [Concomitant]
  13. CLARITIN [Concomitant]
  14. VITAMIN E [Concomitant]

REACTIONS (3)
  - CONTUSION [None]
  - NEUROPATHY PERIPHERAL [None]
  - URINE ARSENIC [None]
